FAERS Safety Report 20645690 (Version 2)
Quarter: 2022Q2

REPORT INFORMATION
  Report Type: Spontaneous
  Country: DE (occurrence: DE)
  Receive Date: 20220328
  Receipt Date: 20220407
  Transmission Date: 20220721
  Serious: Yes (Death, Life-Threatening, Hospitalization, Other)
  Sender: FDA-Public Use
  Company Number: None

PATIENT
  Age: 80 Year
  Sex: Male
  Weight: 60 kg

DRUGS (16)
  1. MOLNUPIRAVIR [Suspect]
     Active Substance: MOLNUPIRAVIR
     Indication: COVID-19
     Dosage: 1600 MG MILLGRAM(S); EVERY DAY 2 SEPARATED DOSES; 4X 200 MG IN THE MORNING AND 4X 200 MG IN THE EVEN
     Route: 048
     Dates: start: 20220210, end: 20220214
  2. FALITHROM [Concomitant]
     Active Substance: PHENPROCOUMON
  3. LINEZOLID [Concomitant]
     Active Substance: LINEZOLID
  4. HEPA MERZ [Concomitant]
     Dosage: 1 DOSAGE FORM, Q8H (AT MORNING , AFTERNOON AND EVENING.)
  5. FOLSAURE VITBALANS [Concomitant]
     Dosage: 5 MILLIGRAM, QD (AT MORNING)
  6. VITAMIN B-KOMPLEX [Concomitant]
     Dosage: 1 DOSAGE FORM, QD (AT MORNING)
  7. VITAMIN B12 [Concomitant]
     Active Substance: CYANOCOBALAMIN
     Dosage: 1000 INTERNATIONAL UNIT, QM
     Route: 058
  8. SODIUM CHLORIDE [Concomitant]
     Active Substance: SODIUM CHLORIDE
     Dosage: 1 DOSAGE FORM, Q12H (AT MORNING AND EVENING)
  9. ZOLPIDEM [Concomitant]
     Active Substance: ZOLPIDEM TARTRATE
     Dosage: 10 MILLIGRAM, QD (AT EVENING)
  10. AMPHO-MORONAL [Concomitant]
     Active Substance: AMPHOTERICIN B
     Dosage: 1 MILLIGRAM, Q2H (ALSO REPORTED AS 1 ML EVERY 2 HOURS)
  11. ERYTHROPOIETIN [Concomitant]
     Active Substance: ERYTHROPOIETIN
     Dosage: 30 MILLIGRAM, EVERY 14 DAYS
     Route: 058
  12. TORSEMIDE [Concomitant]
     Active Substance: TORSEMIDE
     Dosage: 150 MILLIGRAM, QD (ALSO REPROTED AS 1-1 OR 2-0)
  13. FERRO-SANOL DUODENAL [Concomitant]
     Active Substance: FERROUS GLYCINE SULFATE
     Dosage: 1 DOSAGE FORM, Q12H (AT MORNING AND EVENING)
  14. PROPRANOLOL HYDROCHLORIDE [Concomitant]
     Active Substance: PROPRANOLOL HYDROCHLORIDE
     Dosage: 25 MILLIGRAM, Q8H (AT MORNING, AFTERNOON AND EVENING)
  15. PANTOZOL [Concomitant]
     Active Substance: PANTOPRAZOLE SODIUM
     Dosage: 40 MILLIGRAM, QD (AT MORNING)
  16. EPLERENONE [Concomitant]
     Active Substance: EPLERENONE
     Dosage: 25 MILLIGRAM, QD (AT MORNING)

REACTIONS (2)
  - Acute hepatic failure [Fatal]
  - Pancytopenia [Fatal]

NARRATIVE: CASE EVENT DATE: 20220216
